FAERS Safety Report 8539690-0 (Version None)
Quarter: 2012Q3

REPORT INFORMATION
  Report Type: 
  Country: None (occurrence: None)
  Receive Date: 20120726
  Receipt Date: 20110718
  Transmission Date: 20120928
  Serious: No
  Sender: FDA-Public Use
  Company Number: US-ASTRAZENECA-2010SE19561

PATIENT
  Age: 48 Year
  Sex: Female
  Weight: 127 kg

DRUGS (20)
  1. SEROQUEL [Suspect]
     Dosage: 200 MG IN MORNING AND 600 MG AT NIGHT
     Route: 048
     Dates: start: 20080101
  2. BENTYL [Concomitant]
  3. RESTORIL [Concomitant]
  4. NEXIUM [Concomitant]
  5. SEROQUEL [Suspect]
     Indication: DEPRESSION
     Dosage: TOTAL DAILY DOSE 800 MG, DOSE FREQUENCY BID
     Route: 048
     Dates: start: 20080101, end: 20100422
  6. SEROQUEL [Suspect]
     Route: 048
  7. GENUVIA [Concomitant]
  8. SYNTHROID [Concomitant]
  9. SEROQUEL [Suspect]
     Dosage: 200 MG IN MORNING AND 600 MG AT NIGHT
     Route: 048
     Dates: start: 20080101
  10. SEROQUEL [Suspect]
     Route: 048
  11. COZAAR [Concomitant]
  12. VALIUM [Concomitant]
  13. SEROQUEL [Suspect]
     Indication: BIPOLAR DISORDER
     Dosage: TOTAL DAILY DOSE 800 MG, DOSE FREQUENCY BID
     Route: 048
     Dates: start: 20080101, end: 20100422
  14. REGLAN [Concomitant]
  15. ZOCOR [Concomitant]
  16. PLACQUINAL [Concomitant]
  17. LYRICA [Concomitant]
  18. SEROQUEL [Suspect]
     Route: 048
  19. SEROQUEL [Suspect]
     Route: 048
  20. PROZAC [Concomitant]

REACTIONS (7)
  - ANXIETY [None]
  - GASTRIC DISORDER [None]
  - MALAISE [None]
  - SOMATIC DELUSION [None]
  - INSOMNIA [None]
  - DRUG DOSE OMISSION [None]
  - AGITATION [None]
